FAERS Safety Report 9651407 (Version 1)
Quarter: 2013Q4

REPORT INFORMATION
  Report Type: Spontaneous
  Country: US (occurrence: None)
  Receive Date: 20131028
  Receipt Date: 20131028
  Transmission Date: 20140711
  Serious: No
  Sender: FDA-Public Use
  Company Number: None

PATIENT
  Age: 51 Year
  Sex: Female

DRUGS (3)
  1. PAXIL CR [Suspect]
     Indication: DEPRESSION
  2. PAXIL CR [Suspect]
     Indication: ANXIETY
  3. PAXIL CR [Suspect]
     Indication: HOT FLUSH

REACTIONS (3)
  - Hot flush [None]
  - Restlessness [None]
  - Sleep disorder [None]
